FAERS Safety Report 9781454 (Version 4)
Quarter: 2014Q4

REPORT INFORMATION
  Report Type: Report from Study
  Country: US (occurrence: US)
  Receive Date: 20131224
  Receipt Date: 20141027
  Transmission Date: 20150529
  Serious: Yes (Hospitalization)
  Sender: FDA-Public Use
  Company Number: US-BIOGENIDEC-2013BI078874

PATIENT
  Age: 65 Year
  Sex: Female
  Weight: 58 kg

DRUGS (18)
  1. CIPRO [Concomitant]
     Active Substance: CIPROFLOXACIN HYDROCHLORIDE
  2. CALCIUM 500 [Concomitant]
  3. TRAMADOL HCL [Concomitant]
     Active Substance: TRAMADOL HYDROCHLORIDE
  4. ADVIL [Concomitant]
     Active Substance: IBUPROFEN
  5. TECFIDERA [Suspect]
     Active Substance: DIMETHYL FUMARATE
     Indication: MULTIPLE SCLEROSIS
     Route: 048
     Dates: end: 201410
  6. GLUCOS/CHOND [Concomitant]
  7. LORAZEPAM. [Concomitant]
     Active Substance: LORAZEPAM
  8. TECFIDERA [Suspect]
     Active Substance: DIMETHYL FUMARATE
     Indication: MULTIPLE SCLEROSIS
     Route: 048
     Dates: start: 201306
  9. FISH OIL [Concomitant]
     Active Substance: FISH OIL
  10. BACLOFEN. [Concomitant]
     Active Substance: BACLOFEN
  11. ALBUTEROL. [Concomitant]
     Active Substance: ALBUTEROL
  12. TIZANIDINE (TIZANIDINE) [Concomitant]
     Active Substance: TIZANIDINE
  13. TECFIDERA [Suspect]
     Active Substance: DIMETHYL FUMARATE
     Indication: MULTIPLE SCLEROSIS
     Route: 048
  14. TECFIDERA [Suspect]
     Active Substance: DIMETHYL FUMARATE
     Indication: MULTIPLE SCLEROSIS
     Route: 048
     Dates: start: 20141013
  15. DIGESTIVECAP PROBIOTIC [Concomitant]
  16. DIAZEPAM. [Concomitant]
     Active Substance: DIAZEPAM
  17. VITAMIN C [Concomitant]
     Active Substance: ASCORBIC ACID
  18. VITAMIN D [Concomitant]
     Active Substance: CHOLECALCIFEROL

REACTIONS (17)
  - Dry skin [Unknown]
  - Skin lesion [Unknown]
  - Peripheral swelling [Unknown]
  - Erythema [Unknown]
  - Abdominal discomfort [Unknown]
  - Oedema [Unknown]
  - Retching [Unknown]
  - Arthropathy [Unknown]
  - Nausea [Not Recovered/Not Resolved]
  - Intentional product use issue [Not Recovered/Not Resolved]
  - Dry mouth [Unknown]
  - Vomiting [Unknown]
  - Rash [Unknown]
  - Back disorder [Unknown]
  - Sneezing [Unknown]
  - Flushing [Not Recovered/Not Resolved]
  - Diarrhoea [Not Recovered/Not Resolved]

NARRATIVE: CASE EVENT DATE: 2013
